FAERS Safety Report 8379925-0 (Version None)
Quarter: 2012Q2

REPORT INFORMATION
  Report Type: 
  Country: None (occurrence: None)
  Receive Date: 20120523
  Receipt Date: 20120516
  Transmission Date: 20120825
  Serious: Yes (Other)
  Sender: FDA-Public Use
  Company Number: FR-PFIZER INC-2012121024

PATIENT
  Age: 34 Year
  Sex: Female
  Weight: 48 kg

DRUGS (8)
  1. LEVONORGESTREL AND ETHINYL ESTRADIOL [Concomitant]
     Indication: HYPOGONADISM FEMALE
  2. LEVOTHYROXINE SODIUM [Concomitant]
     Indication: BLOOD THYROID STIMULATING HORMONE DECREASED
     Dosage: UNK
     Route: 048
     Dates: start: 20020208
  3. HYDROCORTISONE [Concomitant]
     Indication: BLOOD CORTICOTROPHIN DECREASED
     Dosage: UNK
     Route: 048
     Dates: start: 20020206
  4. SOMATROPIN [Suspect]
     Indication: HYPOPITUITARISM
     Dosage: 0.4 MG, 1X/DAY, 7INJECTIONS/WEEK
     Dates: start: 20040203, end: 20060104
  5. LEVONORGESTREL AND ETHINYL ESTRADIOL [Concomitant]
     Indication: LUTEINISING HORMONE DEFICIENCY
     Dosage: UNK
     Route: 048
     Dates: start: 20040212
  6. SOMATROPIN [Suspect]
     Dosage: 0.4 MG, 1X/DAY
     Dates: start: 20060601
  7. LEVONORGESTREL AND ETHINYL ESTRADIOL [Concomitant]
     Indication: FOLLICLE-STIMULATING HORMONE DEFICIENCY
  8. LEVOTHYROXINE SODIUM [Concomitant]
     Indication: PRIMARY HYPOTHYROIDISM

REACTIONS (1)
  - PITUITARY TUMOUR RECURRENT [None]
